FAERS Safety Report 8606844 (Version 4)
Quarter: 2014Q2

REPORT INFORMATION
  Report Type: Spontaneous
  Country: US (occurrence: US)
  Receive Date: 20120611
  Receipt Date: 20140507
  Transmission Date: 20141212
  Serious: Yes (Hospitalization, Disabling, Other)
  Sender: FDA-Public Use
  Company Number: US-ASTRAZENECA-2012SE34683

PATIENT
  Age: 49 Year
  Sex: Female
  Weight: 73.5 kg

DRUGS (20)
  1. NEXIUM [Suspect]
     Indication: GASTROOESOPHAGEAL REFLUX DISEASE
     Route: 048
     Dates: end: 20060322
  2. NEXIUM [Suspect]
     Indication: GASTROOESOPHAGEAL REFLUX DISEASE
     Route: 048
     Dates: start: 20020929
  3. NEXIUM [Suspect]
     Indication: GASTROOESOPHAGEAL REFLUX DISEASE
     Route: 048
     Dates: start: 20060323
  4. NEXIUM [Suspect]
     Indication: GASTROOESOPHAGEAL REFLUX DISEASE
     Route: 048
     Dates: start: 20120702
  5. GLIMEPIRIDE [Concomitant]
     Dates: start: 20120702
  6. SITAGLIPTIN [Concomitant]
     Dates: start: 20120702
  7. LOSARTAN [Concomitant]
     Dates: start: 20120702
  8. PRAVASTATIN [Concomitant]
     Dates: start: 20120207
  9. ASPIRIN [Concomitant]
     Route: 048
     Dates: start: 20120207
  10. CETIRIZINE [Concomitant]
     Dates: start: 20120207
  11. IBUPROFEN [Concomitant]
     Dosage: 800 MG BY MOUTH EVERY 8 HOURS AS NEEDED
     Dates: start: 20120207
  12. ATACAND [Concomitant]
  13. ACTOS [Concomitant]
     Indication: DIABETES MELLITUS
     Route: 048
  14. ACTOS [Concomitant]
     Indication: DIABETES MELLITUS
     Dates: start: 20110114
  15. LORATADINE [Concomitant]
     Indication: MILK ALLERGY
     Route: 048
  16. ENALAPRIL [Concomitant]
     Route: 048
  17. FUROSEMIDE [Concomitant]
     Indication: OEDEMA
  18. GLYBURIDE MICRO [Concomitant]
  19. GLYBURIDE MICRO [Concomitant]
     Dates: start: 20110519
  20. ESTRADERM [Concomitant]
     Dates: start: 20030107

REACTIONS (11)
  - Activities of daily living impaired [Unknown]
  - Rib fracture [Unknown]
  - Fall [Unknown]
  - Foot fracture [Unknown]
  - Joint dislocation [Unknown]
  - Chest pain [Unknown]
  - Osteoporosis [Unknown]
  - Multiple fractures [Unknown]
  - Bone pain [Unknown]
  - Arthritis [Unknown]
  - Depression [Unknown]
